FAERS Safety Report 20944980 (Version 3)
Quarter: 2022Q4

REPORT INFORMATION
  Report Type: Spontaneous
  Country: CA (occurrence: CA)
  Receive Date: 20220610
  Receipt Date: 20221115
  Transmission Date: 20230113
  Serious: Yes (Other)
  Sender: FDA-Public Use
  Company Number: CA-PFIZER INC-202200809802

PATIENT
  Age: 34 Year
  Sex: Female

DRUGS (3)
  1. METHOTREXATE SODIUM [Suspect]
     Active Substance: METHOTREXATE SODIUM
     Dosage: 25 MG, WEEKLY
     Route: 058
     Dates: start: 202104
  2. PREDNISONE [Concomitant]
     Active Substance: PREDNISONE
     Dosage: 7.5 MG, IN PROGRESS, WEANING IMPOSSIBLE.
  3. BACTRIM [Concomitant]
     Active Substance: SULFAMETHOXAZOLE\TRIMETHOPRIM
     Dosage: 1 DF/3XWEEK
     Dates: start: 2021

REACTIONS (13)
  - Loss of consciousness [Unknown]
  - Arrhythmia [Unknown]
  - Treatment failure [Unknown]
  - Off label use [Unknown]
  - Dyspnoea [Unknown]
  - Arthralgia [Unknown]
  - Metabolic disorder [Unknown]
  - Lung infiltration [Unknown]
  - Hepatic mass [Unknown]
  - Nodule [Unknown]
  - Bronchitis [Unknown]
  - Myalgia [Unknown]
  - Nasal congestion [Unknown]

NARRATIVE: CASE EVENT DATE: 20220901
